FAERS Safety Report 15807449 (Version 1)
Quarter: 2018Q4

REPORT INFORMATION
  Report Type: Spontaneous
  Country: US (occurrence: US)
  Receive Date: 20181214
  Receipt Date: 20181214
  Transmission Date: 20190205
  Serious: No
  Sender: FDA-Public Use
  Company Number: None

PATIENT
  Age: 71 Year
  Sex: Female
  Weight: 45.36 kg

DRUGS (2)
  1. RASUVO [Suspect]
     Active Substance: METHOTREXATE SODIUM
     Indication: RHEUMATOID ARTHRITIS
     Dosage: INJECT 15MG (0.3ML) SUBCUTANEOUSLY ONCE WEEKLY ON THE SAME DAY EACH WEEK AS DIRECTED
     Route: 058
     Dates: start: 201810
  2. RASUVO [Suspect]
     Active Substance: METHOTREXATE SODIUM
     Indication: RHEUMATOID ARTHRITIS

REACTIONS (1)
  - Red blood cell sedimentation rate increased [None]
